FAERS Safety Report 10975942 (Version 2)
Quarter: 2015Q2

REPORT INFORMATION
  Report Type: Spontaneous
  Country: US (occurrence: US)
  Receive Date: 20150401
  Receipt Date: 20150525
  Transmission Date: 20150821
  Serious: No
  Sender: FDA-Public Use
  Company Number: US-JNJFOC-20140505669

PATIENT
  Sex: Male
  Weight: 79.38 kg

DRUGS (3)
  1. RISPERDAL [Suspect]
     Active Substance: RISPERIDONE
     Indication: AUTISM
     Route: 048
  2. RISPERDAL [Suspect]
     Active Substance: RISPERIDONE
     Indication: AUTISM
     Route: 048
  3. ZYPREXA [Concomitant]
     Active Substance: OLANZAPINE
     Route: 048

REACTIONS (2)
  - Blood cholesterol increased [Not Recovered/Not Resolved]
  - Off label use [Unknown]
